FAERS Safety Report 13162860 (Version 8)
Quarter: 2017Q3

REPORT INFORMATION
  Report Type: Spontaneous
  Country: US (occurrence: US)
  Receive Date: 20170130
  Receipt Date: 20170929
  Transmission Date: 20171127
  Serious: Yes (Congenital Anomaly, Other)
  Sender: FDA-Public Use
  Company Number: PHEH2017US003015

PATIENT
  Sex: Female

DRUGS (3)
  1. ZOFRAN [Suspect]
     Active Substance: ONDANSETRON HYDROCHLORIDE
     Indication: FOETAL EXPOSURE DURING PREGNANCY
     Dosage: MOTHER^S DOSE: 04 MG, UNK
     Route: 064
  2. ZOFRAN ODT [Suspect]
     Active Substance: ONDANSETRON HYDROCHLORIDE
     Indication: FOETAL EXPOSURE DURING PREGNANCY
     Dosage: MOTHER^S DOSE: 04 MG, UNK
     Route: 064
  3. ZOFRAN [Suspect]
     Active Substance: ONDANSETRON HYDROCHLORIDE
     Indication: FOETAL EXPOSURE DURING PREGNANCY
     Route: 064

REACTIONS (24)
  - Tricuspid valve incompetence [Unknown]
  - Gastrooesophageal reflux disease [Unknown]
  - Pyrexia [Unknown]
  - Congenital aortic atresia [Unknown]
  - Mitral valve atresia [Unknown]
  - Left-to-right cardiac shunt [Unknown]
  - Right-to-left cardiac shunt [Unknown]
  - Diarrhoea neonatal [Unknown]
  - Cyanosis [Unknown]
  - Right ventricular dilatation [Unknown]
  - Foetal exposure during pregnancy [Unknown]
  - Nasopharyngitis [Unknown]
  - Palpitations [Unknown]
  - Hypoplastic left heart syndrome [Unknown]
  - Atrial septal defect [Unknown]
  - Injury [Unknown]
  - Upper respiratory tract infection [Unknown]
  - Cough [Unknown]
  - Takayasu^s arteritis [Unknown]
  - Heart disease congenital [Unknown]
  - Right ventricular enlargement [Unknown]
  - Right ventricular hypertrophy [Unknown]
  - Right atrial dilatation [Unknown]
  - Neonatal hypoxia [Unknown]
